FAERS Safety Report 8601293-7 (Version None)
Quarter: 2012Q3

REPORT INFORMATION
  Report Type: 
  Country: None (occurrence: None)
  Receive Date: 20120817
  Receipt Date: 20120808
  Transmission Date: 20120928
  Serious: No
  Sender: FDA-Public Use
  Company Number: JP-SANOFI-AVENTIS-2012SA047575

PATIENT
  Age: 72 Year
  Sex: Female

DRUGS (2)
  1. TAXOTERE [Suspect]
     Indication: GASTRIC CANCER
     Dosage: ON DAY ONE
     Route: 042
     Dates: start: 20100405, end: 20100816
  2. TS-1 [Suspect]
     Indication: GASTRIC CANCER
     Dosage: ON DAYS 1-14, EVERY THREE WEEKS
     Route: 048
     Dates: start: 20100405, end: 20100816

REACTIONS (3)
  - DECREASED APPETITE [None]
  - MALAISE [None]
  - ALOPECIA [None]
